FAERS Safety Report 5232455-7 (Version None)
Quarter: 2007Q1

REPORT INFORMATION
  Report Type: 
  Country: None (occurrence: None)
  Receive Date: 20070205
  Receipt Date: 20070124
  Transmission Date: 20070707
  Serious: Yes (Death, Hospitalization)
  Sender: FDA-Public Use
  Company Number: MEDI-0005336

PATIENT
  Age: 7 Month

DRUGS (1)
  1. SYNAGIS [Suspect]

REACTIONS (2)
  - BACTERIAL SEPSIS [None]
  - RESPIRATORY SYNCYTIAL VIRUS INFECTION [None]
